FAERS Safety Report 8309581-9 (Version None)
Quarter: 2012Q2

REPORT INFORMATION
  Report Type: 
  Country: None (occurrence: None)
  Receive Date: 20120420
  Receipt Date: 20120412
  Transmission Date: 20120825
  Serious: Yes (Hospitalization)
  Sender: FDA-Public Use
  Company Number: 2012SP017244

PATIENT
  Age: 60 Year
  Sex: Female

DRUGS (1)
  1. REMERON [Suspect]
     Indication: DEPRESSION
     Dosage: 15 MG;QD;PO
     Route: 048
     Dates: start: 20120301, end: 20120315

REACTIONS (4)
  - ALTERED STATE OF CONSCIOUSNESS [None]
  - MUSCULOSKELETAL STIFFNESS [None]
  - FEELING ABNORMAL [None]
  - BLOOD PRESSURE SYSTOLIC INCREASED [None]
